FAERS Safety Report 17913316 (Version 1)
Quarter: 2020Q2

REPORT INFORMATION
  Report Type: Spontaneous
  Country: CN (occurrence: CN)
  Receive Date: 20200618
  Receipt Date: 20200618
  Transmission Date: 20200714
  Serious: Yes (Hospitalization, Other)
  Sender: FDA-Public Use
  Company Number: CN-PFIZER INC-2020231808

PATIENT
  Age: 49 Year
  Sex: Male
  Weight: 82 kg

DRUGS (13)
  1. IMIPENEM AND CILASTATIN SODIUM [Concomitant]
     Active Substance: CILASTATIN SODIUM\IMIPENEM
     Indication: INFECTION
     Dosage: 1 G, 4X/DAY (Q6H)
     Route: 041
  2. VANCOMYCIN [Concomitant]
     Active Substance: VANCOMYCIN
     Indication: ANTI-INFECTIVE THERAPY
     Dosage: 0.5 G, 3X/DAY(Q8H)
     Route: 041
  3. ATORVASTATIN CALCIUM. [Interacting]
     Active Substance: ATORVASTATIN CALCIUM
     Indication: LIPIDS INCREASED
     Dosage: 20 MG, 1X/DAY
     Route: 048
  4. AMIODARONE [Interacting]
     Active Substance: AMIODARONE
     Indication: ARRHYTHMIA
     Dosage: 450 MG, 1X/DAY
  5. PANTOPRAZOLE SODIUM. [Interacting]
     Active Substance: PANTOPRAZOLE SODIUM
     Indication: SYMPTOMATIC TREATMENT
     Dosage: 60 MG, 2X/DAY
     Route: 041
  6. BUDESONIDE. [Concomitant]
     Active Substance: BUDESONIDE
     Indication: ASTHMA
     Dosage: 1 MG
  7. VORICONAZOLE. [Suspect]
     Active Substance: VORICONAZOLE
     Indication: FUNGAL INFECTION
     Dosage: 0.2 G, 2X/DAY
     Route: 041
  8. DIGOXIN. [Interacting]
     Active Substance: DIGOXIN
     Indication: SYMPTOMATIC TREATMENT
     Dosage: 0.125 MG, 1X/DAY
     Route: 048
  9. AMBROXOL [Concomitant]
     Active Substance: AMBROXOL
     Indication: PRODUCTIVE COUGH
     Dosage: 100 ML, 1X/DAY
     Route: 041
  10. METOPROLOL. [Concomitant]
     Active Substance: METOPROLOL
     Indication: ARRHYTHMIA
     Dosage: 25 MG, 2X/DAY
     Route: 048
  11. TERBUTALINE [Concomitant]
     Active Substance: TERBUTALINE
     Indication: ASTHMA
     Dosage: 5 MG, 2X/DAY
     Route: 055
  12. AMINOPHYLLINE MONOHYDRATE [Concomitant]
     Indication: ASTHMA
     Dosage: 0.25 G, 1X/DAY
     Route: 041
  13. MOXIFLOXACIN. [Concomitant]
     Active Substance: MOXIFLOXACIN
     Indication: ANTI-INFECTIVE THERAPY
     Dosage: 0.4 G, 1X/DAY
     Route: 041

REACTIONS (2)
  - Drug interaction [Unknown]
  - Liver injury [Recovering/Resolving]
